FAERS Safety Report 7127604-X (Version None)
Quarter: 2010Q4

REPORT INFORMATION
  Report Type: 
  Country: None (occurrence: None)
  Receive Date: 20101130
  Receipt Date: 20101028
  Transmission Date: 20110411
  Serious: Yes (Disabling, Other)
  Sender: FDA-Public Use
  Company Number: CO-AMGEN-COLCT2010002737

PATIENT

DRUGS (3)
  1. ENBREL [Suspect]
     Indication: RHEUMATOID ARTHRITIS
     Dosage: 25 MG, 2 TIMES/WK
     Route: 058
     Dates: end: 20100301
  2. ENALAPRIL [Concomitant]
     Indication: HYPERTENSION
     Dates: start: 20100101
  3. LOSARTAN [Concomitant]
     Indication: HYPERTENSION
     Dates: start: 20070101

REACTIONS (4)
  - ASTHMA [None]
  - DEVICE FAILURE [None]
  - DEVICE RELATED INFECTION [None]
  - KNEE ARTHROPLASTY [None]
